FAERS Safety Report 4622260-4 (Version None)
Quarter: 2005Q1

REPORT INFORMATION
  Report Type: 
  Country: None (occurrence: None)
  Receive Date: 20050328
  Receipt Date: 20041119
  Transmission Date: 20050727
  Serious: Yes (Other)
  Sender: FDA-Public Use
  Company Number: 213259

PATIENT
  Age: 66 Year
  Sex: Female
  Weight: 90 kg

DRUGS (3)
  1. AVASTIN [Suspect]
     Indication: COLORECTAL CANCER
     Dosage: 5 MG/KG, DAYS 1 +15; INTRAVENOUS
     Route: 042
     Dates: start: 20040811
  2. XELODA [Concomitant]
  3. CPT-11 (IRINOTECAN HYDROCHLORIDE) [Concomitant]

REACTIONS (3)
  - ATRIAL FIBRILLATION [None]
  - DIZZINESS [None]
  - TACHYARRHYTHMIA [None]
